FAERS Safety Report 18533635 (Version 2)
Quarter: 2021Q1

REPORT INFORMATION
  Report Type: Spontaneous
  Country: US (occurrence: US)
  Receive Date: 20201123
  Receipt Date: 20210317
  Transmission Date: 20210419
  Serious: Yes (Life-Threatening, Hospitalization)
  Sender: FDA-Public Use
  Company Number: US-ALLERGAN-2044855US

PATIENT

DRUGS (1)
  1. ARMOUR THYROID [Suspect]
     Active Substance: THYROID, PORCINE
     Indication: THYROID HORMONE REPLACEMENT THERAPY
     Dosage: UNK

REACTIONS (11)
  - Sepsis [Unknown]
  - Alopecia [Unknown]
  - Dry skin [Unknown]
  - Fatigue [Unknown]
  - Weight increased [Unknown]
  - Small intestinal perforation [Unknown]
  - Pruritus [Unknown]
  - Loss of consciousness [Recovered/Resolved]
  - Haemorrhage [Unknown]
  - Thyroid hormones increased [Unknown]
  - Madarosis [Unknown]

NARRATIVE: CASE EVENT DATE: 202003
